APPROVED DRUG PRODUCT: ERGOCALCIFEROL
Active Ingredient: ERGOCALCIFEROL
Strength: 50,000 IU
Dosage Form/Route: CAPSULE;ORAL
Application: A040865 | Product #001
Applicant: SUN PHARMACEUTICAL INDUSTRIES INC
Approved: Dec 29, 2009 | RLD: No | RS: No | Type: DISCN